FAERS Safety Report 8838775 (Version 2)
Quarter: 2013Q1

REPORT INFORMATION
  Report Type: Spontaneous
  Country: US (occurrence: US)
  Receive Date: 20121012
  Receipt Date: 20130329
  Transmission Date: 20140127
  Serious: No
  Sender: FDA-Public Use
  Company Number: US-009507513-1209USA006140

PATIENT
  Age: 59 Year
  Sex: Female
  Weight: 63.49 kg

DRUGS (7)
  1. MIRALAX [Suspect]
     Indication: BOWEL PREPARATION
     Dosage: 119 G, ONCE
     Route: 048
     Dates: start: 20120819, end: 20120820
  2. DULCOLAX [Suspect]
     Indication: PRODUCT USED FOR UNKNOWN INDICATION
  3. CARDIZEM [Concomitant]
     Indication: HYPERTENSION
     Dosage: UNK
     Route: 048
  4. SPIRIVA [Concomitant]
     Indication: EMPHYSEMA
     Dosage: UNK
     Route: 048
  5. PAROXETINE [Concomitant]
     Indication: DEPRESSION
     Dosage: UNK
     Route: 048
  6. ALBUTEROL [Concomitant]
     Indication: DYSPNOEA
     Dosage: UNK, PRN
     Route: 048
  7. ZOMIG [Concomitant]
     Indication: MIGRAINE
     Dosage: UNK, PRN
     Route: 048

REACTIONS (15)
  - Blood pressure fluctuation [Unknown]
  - Chills [Unknown]
  - Hypoaesthesia [Unknown]
  - Flatulence [Not Recovered/Not Resolved]
  - Vomiting [Unknown]
  - Malaise [Unknown]
  - Overdose [Unknown]
  - Abdominal pain [Not Recovered/Not Resolved]
  - Abdominal distension [Recovered/Resolved]
  - Nausea [Recovered/Resolved]
  - Hypotension [Recovered/Resolved]
  - Dizziness [Recovered/Resolved]
  - Hypoaesthesia [Recovered/Resolved]
  - Paraesthesia [Recovered/Resolved]
  - Diarrhoea [Recovered/Resolved]
